FAERS Safety Report 13105144 (Version 1)
Quarter: 2017Q1

REPORT INFORMATION
  Report Type: Spontaneous
  Country: FR (occurrence: FR)
  Receive Date: 20170111
  Receipt Date: 20170111
  Transmission Date: 20170428
  Serious: Yes (Other)
  Sender: FDA-Public Use
  Company Number: FR-009507513-1701FRA003075

PATIENT
  Age: 63 Year
  Sex: Female

DRUGS (2)
  1. SANDOZ PREDNISOLONE [Suspect]
     Active Substance: PREDNISOLONE
     Indication: URTICARIA
     Dosage: 20MG, 3 TABLETS QD
     Route: 048
     Dates: start: 20161126, end: 201611
  2. AERIUS [Suspect]
     Active Substance: DESLORATADINE
     Dosage: 1 DF, ONCE, IN THE EVENING
     Route: 048
     Dates: start: 20161126, end: 201611

REACTIONS (3)
  - Face oedema [Recovered/Resolved]
  - Self-medication [None]
  - Erythema [Recovered/Resolved]

NARRATIVE: CASE EVENT DATE: 20161127
